FAERS Safety Report 8099249-9 (Version None)
Quarter: 2012Q1

REPORT INFORMATION
  Report Type: 
  Country: None (occurrence: None)
  Receive Date: 20120129
  Receipt Date: 20111025
  Transmission Date: 20120608
  Serious: No
  Sender: FDA-Public Use
  Company Number: US-ABBOTT-11P-163-0869292-00

PATIENT
  Sex: Male
  Weight: 52.21 kg

DRUGS (3)
  1. METHOTREXATE [Concomitant]
     Indication: PRODUCT USED FOR UNKNOWN INDICATION
  2. HUMIRA [Suspect]
     Indication: RHEUMATOID ARTHRITIS
  3. PREDNISONE TAB [Concomitant]
     Indication: PRODUCT USED FOR UNKNOWN INDICATION

REACTIONS (9)
  - MALAISE [None]
  - DRUG EFFECT DECREASED [None]
  - WEIGHT DECREASED [None]
  - NASOPHARYNGITIS [None]
  - DECREASED APPETITE [None]
  - IMMUNE SYSTEM DISORDER [None]
  - POOR QUALITY SLEEP [None]
  - SYSTEMIC LUPUS ERYTHEMATOSUS [None]
  - PAIN [None]
